FAERS Safety Report 5812867-0 (Version None)
Quarter: 2008Q3

REPORT INFORMATION
  Report Type: 
  Country: None (occurrence: None)
  Receive Date: 20080714
  Receipt Date: 20080714
  Transmission Date: 20090109
  Serious: Yes (Hospitalization)
  Sender: FDA-Public Use
  Company Number: None

PATIENT
  Sex: Female
  Weight: 68.2 kg

DRUGS (2)
  1. CARBOPLATIN [Suspect]
     Dosage: 590 MG
  2. TAXOL [Suspect]
     Dosage: 285 MG

REACTIONS (19)
  - ABNORMAL BEHAVIOUR [None]
  - AGITATION [None]
  - ANOREXIA [None]
  - ASTHENIA [None]
  - CHILLS [None]
  - CONFUSIONAL STATE [None]
  - DEHYDRATION [None]
  - DELIRIUM [None]
  - DEPRESSION [None]
  - DISORIENTATION [None]
  - DIZZINESS [None]
  - DYSPNOEA [None]
  - HOSTILITY [None]
  - HYPOKALAEMIA [None]
  - INCOHERENT [None]
  - MUSCLE SPASMS [None]
  - NAUSEA [None]
  - URINE ODOUR ABNORMAL [None]
  - VAGINAL DISORDER [None]
